FAERS Safety Report 13871883 (Version 1)
Quarter: 2017Q3

REPORT INFORMATION
  Report Type: Spontaneous
  Country: CH (occurrence: CH)
  Receive Date: 20170816
  Receipt Date: 20170816
  Transmission Date: 20171127
  Serious: Yes (Hospitalization)
  Sender: FDA-Public Use
  Company Number: CH-SA-2017SA143906

PATIENT
  Age: 91 Year
  Sex: Female

DRUGS (12)
  1. TORASEMIDE [Concomitant]
     Active Substance: TORSEMIDE
  2. CLEXANE [Suspect]
     Active Substance: ENOXAPARIN SODIUM
     Route: 058
     Dates: start: 20160130, end: 20170102
  3. ZANIDIP [Concomitant]
     Active Substance: LERCANIDIPINE HYDROCHLORIDE
     Route: 065
     Dates: end: 20161226
  4. PRAVASTATIN. [Concomitant]
     Active Substance: PRAVASTATIN
  5. TAMIFLU [Concomitant]
     Active Substance: OSELTAMIVIR PHOSPHATE
     Route: 065
     Dates: start: 20161229, end: 20170104
  6. METOLAZONE. [Suspect]
     Active Substance: METOLAZONE
     Route: 048
     Dates: start: 20170113, end: 20170115
  7. OLMETEC [Concomitant]
     Active Substance: OLMESARTAN MEDOXOMIL
     Route: 065
     Dates: end: 20161226
  8. NEXIUM [Concomitant]
     Active Substance: ESOMEPRAZOLE MAGNESIUM
  9. DIGOXINE [Suspect]
     Active Substance: DIGOXIN
     Dosage: REGIMEN-5
     Route: 048
     Dates: end: 20161225
  10. METFORMIN [Concomitant]
     Active Substance: METFORMIN HYDROCHLORIDE
  11. MONURIL [Suspect]
     Active Substance: FOSFOMYCIN SODIUM
     Route: 048
     Dates: start: 20170113, end: 20170113
  12. ASPIRIN CARDIO [Suspect]
     Active Substance: ASPIRIN
     Route: 048
     Dates: end: 20170102

REACTIONS (3)
  - Syncope [Recovered/Resolved]
  - Shock haemorrhagic [Recovered/Resolved]
  - Drug eruption [Recovered/Resolved]

NARRATIVE: CASE EVENT DATE: 20161225
